FAERS Safety Report 13405160 (Version 2)
Quarter: 2017Q2

REPORT INFORMATION
  Report Type: Spontaneous
  Country: IT (occurrence: IT)
  Receive Date: 20170405
  Receipt Date: 20170410
  Transmission Date: 20170830
  Serious: Yes (Life-Threatening, Hospitalization, Other)
  Sender: FDA-Public Use
  Company Number: IT-SA-2017SA056384

PATIENT
  Age: 66 Year
  Sex: Female

DRUGS (9)
  1. ATROPINE. [Suspect]
     Active Substance: ATROPINE
     Indication: ATRIOVENTRICULAR BLOCK COMPLETE
     Route: 042
  2. AMLODIPINE [Interacting]
     Active Substance: AMLODIPINE BESYLATE
     Route: 065
  3. CLINDAMYCIN. [Suspect]
     Active Substance: CLINDAMYCIN
     Route: 065
  4. METFORMIN [Concomitant]
     Active Substance: METFORMIN HYDROCHLORIDE
  5. RIFAMPICIN [Suspect]
     Active Substance: RIFAMPIN
     Route: 065
  6. MINOCYCLINE HYDROCHLORIDE. [Suspect]
     Active Substance: MINOCYCLINE HYDROCHLORIDE
     Route: 065
  7. EPINEPHRINE HYDROCHLORIDE. [Suspect]
     Active Substance: EPINEPHRINE HYDROCHLORIDE
     Indication: ATRIOVENTRICULAR BLOCK COMPLETE
     Route: 065
  8. CALCIUM [Suspect]
     Active Substance: CALCIUM
     Indication: ATRIOVENTRICULAR BLOCK COMPLETE
     Dosage: INFUSION
     Route: 065
  9. BISOPROLOL SALT NOT SPECIFIED [Interacting]
     Active Substance: BISOPROLOL
     Route: 065

REACTIONS (11)
  - Rales [Unknown]
  - Drug interaction [Unknown]
  - Acute kidney injury [Recovering/Resolving]
  - PO2 decreased [Unknown]
  - Heart rate decreased [Recovering/Resolving]
  - Sensory disturbance [Recovering/Resolving]
  - Drug ineffective [Unknown]
  - Oedema [Recovering/Resolving]
  - Atrioventricular block complete [Recovering/Resolving]
  - Oedema peripheral [Recovering/Resolving]
  - Toxicity to various agents [Recovering/Resolving]
